FAERS Safety Report 7805247-X (Version None)
Quarter: 2011Q4

REPORT INFORMATION
  Report Type: 
  Country: None (occurrence: None)
  Receive Date: 20111010
  Receipt Date: 20110927
  Transmission Date: 20120403
  Serious: Yes (Hospitalization, Other)
  Sender: FDA-Public Use
  Company Number: FR-ELI_LILLY_AND_COMPANY-FR201109007530

PATIENT
  Sex: Male

DRUGS (10)
  1. ZYPREXA [Suspect]
     Dosage: 10 MG, QD
     Route: 048
     Dates: end: 20110720
  2. ACETAMINOPHEN [Concomitant]
     Indication: PAIN
     Dosage: 1 G, TID
     Route: 048
  3. TIAPRIDAL [Concomitant]
     Dosage: 5 DF, EVERY 6 HRS
     Route: 048
     Dates: start: 20110718, end: 20110720
  4. ZYPREXA [Suspect]
     Indication: AGITATION
     Dosage: 2.5 MG, BID
     Route: 048
     Dates: end: 20110712
  5. TIAPRIDAL [Concomitant]
     Dosage: 10 DF, EVERY 6 HRS
     Route: 048
     Dates: start: 20110712, end: 20110718
  6. ZYPREXA [Suspect]
     Dosage: 5 MG, EACH MORNING
     Route: 048
     Dates: end: 20110720
  7. MIRTAZAPINE [Concomitant]
     Indication: DEPRESSION
     Dosage: 30 MG, QD
     Route: 048
     Dates: end: 20110718
  8. CLONAZEPAM [Concomitant]
     Dosage: 10 DF, EVERY 6 HRS
     Route: 048
  9. LOXAPINE HCL [Concomitant]
     Dosage: UNK
     Route: 048
     Dates: start: 20110701
  10. TIAPRIDAL [Concomitant]
     Dosage: 15 DF, EVERY 6 HRS
     Route: 048
     Dates: end: 20110712

REACTIONS (5)
  - ALANINE AMINOTRANSFERASE INCREASED [None]
  - GAMMA-GLUTAMYLTRANSFERASE INCREASED [None]
  - OFF LABEL USE [None]
  - HOSPITALISATION [None]
  - ASPARTATE AMINOTRANSFERASE INCREASED [None]
